FAERS Safety Report 8360592-7 (Version None)
Quarter: 2012Q2

REPORT INFORMATION
  Report Type: 
  Country: None (occurrence: None)
  Receive Date: 20120515
  Receipt Date: 20120504
  Transmission Date: 20120825
  Serious: No
  Sender: FDA-Public Use
  Company Number: US-ASTRAZENECA-2010SE03373

PATIENT
  Age: 50 Year
  Sex: Female

DRUGS (4)
  1. VIMOVO [Suspect]
     Route: 048
  2. TYLENOL (CAPLET) [Concomitant]
  3. PRILOSEC [Suspect]
     Route: 048
  4. NEXIUM [Suspect]
     Route: 048

REACTIONS (3)
  - ABDOMINAL PAIN UPPER [None]
  - PAIN [None]
  - INSOMNIA [None]
